FAERS Safety Report 6258573-2 (Version None)
Quarter: 2009Q3

REPORT INFORMATION
  Report Type: 
  Country: None (occurrence: None)
  Receive Date: 20090707
  Receipt Date: 20090626
  Transmission Date: 20100115
  Serious: Yes (Other)
  Sender: FDA-Public Use
  Company Number: US-ROCHE-641011

PATIENT
  Sex: Male
  Weight: 93.4 kg

DRUGS (2)
  1. CAPECITABINE [Suspect]
     Indication: HEAD AND NECK CANCER
     Dosage: 1000 MG IN THE MORNING AND 500 MG IN THE EVENING.
     Route: 048
     Dates: start: 20090326, end: 20090601
  2. LOVENOX [Concomitant]

REACTIONS (1)
  - MALIGNANT NEOPLASM PROGRESSION [None]
